FAERS Safety Report 9619251 (Version 3)
Quarter: 2013Q4

REPORT INFORMATION
  Report Type: Spontaneous
  Country: IT (occurrence: IT)
  Receive Date: 20131014
  Receipt Date: 20131101
  Transmission Date: 20140711
  Serious: Yes (Hospitalization)
  Sender: FDA-Public Use
  Company Number: IT-PFIZER INC-2013289729

PATIENT
  Age: 35 Year
  Sex: Male

DRUGS (1)
  1. CAVERJECT [Suspect]
     Indication: DIAGNOSTIC PROCEDURE
     Dosage: 20 UG, SINGLE
     Dates: start: 20130716, end: 2013

REACTIONS (3)
  - Incorrect dose administered [Unknown]
  - Necrosis [Unknown]
  - Priapism [Not Recovered/Not Resolved]
